FAERS Safety Report 6023836-2 (Version None)
Quarter: 2008Q4

REPORT INFORMATION
  Report Type: 
  Country: None (occurrence: None)
  Receive Date: 20081230
  Receipt Date: 20081218
  Transmission Date: 20090506
  Serious: Yes (Death)
  Sender: FDA-Public Use
  Company Number: AU-PFIZER INC-2008094191

PATIENT

DRUGS (8)
  1. SUTENT [Suspect]
     Indication: RENAL CANCER
     Dosage: 50 MG, 1X/DAY
     Route: 048
     Dates: start: 20080522, end: 20081030
  2. SODIUM POLYSTYRENE SULFONATE [Concomitant]
  3. ACETAMINOPHEN W/ CODEINE [Concomitant]
  4. GLICLAZIDE [Concomitant]
  5. LIPITOR [Concomitant]
  6. RAMIPRIL [Concomitant]
  7. AMLODIPINE [Concomitant]
  8. METOPROLOL [Concomitant]

REACTIONS (2)
  - DEATH [None]
  - RENAL FAILURE [None]
